FAERS Safety Report 6400219-4 (Version None)
Quarter: 2009Q4

REPORT INFORMATION
  Report Type: 
  Country: None (occurrence: None)
  Receive Date: 20091014
  Receipt Date: 20091005
  Transmission Date: 20100525
  Serious: Yes (Other)
  Sender: FDA-Public Use
  Company Number: US-JNJFOC-20090905610

PATIENT
  Age: 38 Year
  Sex: Male

DRUGS (6)
  1. TYLOX [Suspect]
     Indication: DRUG ABUSE
     Dosage: CRUSHING AND SNORTING THREE PILLS, THREE TIMES A DAY FOR MONTHS
     Route: 045
  2. PERCOCET [Suspect]
     Indication: DRUG ABUSE
     Route: 045
  3. LORCET-HD [Suspect]
     Indication: DRUG ABUSE
     Route: 055
  4. VICODIN [Suspect]
     Indication: DRUG ABUSE
     Route: 055
  5. EXTRA STRENGTH TYLENOL [Suspect]
     Route: 045
  6. EXTRA STRENGTH TYLENOL [Suspect]
     Indication: DRUG USE FOR UNKNOWN INDICATION
     Route: 045

REACTIONS (6)
  - DRUG ABUSE [None]
  - INCORRECT ROUTE OF DRUG ADMINISTRATION [None]
  - INTENTIONAL OVERDOSE [None]
  - NASAL NECROSIS [None]
  - NECROSIS [None]
  - PHARYNGEAL NECROSIS [None]
